FAERS Safety Report 8997832 (Version 2)
Quarter: 2013Q1

REPORT INFORMATION
  Report Type: Spontaneous
  Country: US (occurrence: US)
  Receive Date: 20130104
  Receipt Date: 20130313
  Transmission Date: 20140127
  Serious: Yes (Death)
  Sender: FDA-Public Use
  Company Number: US-GLAXOSMITHKLINE-A1007139A

PATIENT
  Age: 74 Year
  Sex: Male

DRUGS (4)
  1. VOTRIENT [Suspect]
     Indication: RENAL CANCER
     Dosage: 400MG PER DAY
     Route: 048
     Dates: start: 20110512, end: 20121112
  2. NEXIUM [Concomitant]
  3. CRESTOR [Concomitant]
  4. PROZAC [Concomitant]

REACTIONS (6)
  - Death [Fatal]
  - Cerebrovascular accident [Unknown]
  - Diarrhoea [Unknown]
  - White blood cell count decreased [Unknown]
  - Red blood cell count decreased [Unknown]
  - Lymphadenopathy [Unknown]
